FAERS Safety Report 24279162 (Version 4)
Quarter: 2025Q1

REPORT INFORMATION
  Report Type: Spontaneous
  Country: US (occurrence: US)
  Receive Date: 20240903
  Receipt Date: 20250205
  Transmission Date: 20250408
  Serious: No
  Sender: PFIZER
  Company Number: US-PFIZER INC-PV202400083226

PATIENT
  Age: 66 Year
  Sex: Female
  Weight: 76.2 kg

DRUGS (9)
  1. TUKYSA [Suspect]
     Active Substance: TUCATINIB
     Indication: Breast cancer female
     Dosage: 300 MG, 2X/DAY (150MG, 2 TABLETS TWICE A DAY)/2 TABLETS TWICE DAILY
  2. TUKYSA [Suspect]
     Active Substance: TUCATINIB
     Dosage: 300 MG, 2X/DAY IN THE MORNING AND AT BEDTIME
     Route: 048
     Dates: start: 20240405
  3. TUKYSA [Suspect]
     Active Substance: TUCATINIB
     Dosage: 300MG, TWICE A DAY, BY MOUTH
     Route: 048
     Dates: start: 2024
  4. XELODA [Suspect]
     Active Substance: CAPECITABINE
     Indication: Breast cancer female
  5. XELODA [Suspect]
     Active Substance: CAPECITABINE
     Dosage: 1300 MG, TWICE A DAY, BY MOUTH
     Route: 048
     Dates: start: 2024
  6. ZOFRAN [Concomitant]
     Active Substance: ONDANSETRON HYDROCHLORIDE
     Indication: Nausea
  7. IMODIUM [Concomitant]
     Active Substance: LOPERAMIDE HYDROCHLORIDE
     Indication: Diarrhoea
  8. POTASSIUM CHLORIDE [Concomitant]
     Active Substance: POTASSIUM CHLORIDE
     Dosage: TAKING 2 TABLETS A DAY
  9. POTASSIUM CHLORIDE [Concomitant]
     Active Substance: POTASSIUM CHLORIDE
     Dosage: 1 TABLET A DAY

REACTIONS (4)
  - Blister [Unknown]
  - Haemoglobin decreased [Unknown]
  - Haematocrit decreased [Unknown]
  - Red blood cell count decreased [Unknown]

NARRATIVE: CASE EVENT DATE: 20240504
